FAERS Safety Report 16034695 (Version 2)
Quarter: 2019Q1

REPORT INFORMATION
  Report Type: Spontaneous
  Country: US (occurrence: US)
  Receive Date: 20190305
  Receipt Date: 20190305
  Transmission Date: 20190418
  Serious: No
  Sender: FDA-Public Use
  Company Number: US-BAYER-2019-045410

PATIENT
  Sex: Female

DRUGS (1)
  1. MIRALAX [Suspect]
     Active Substance: POLYETHYLENE GLYCOL 3350
     Indication: CONSTIPATION
     Dosage: UNK
     Route: 048

REACTIONS (7)
  - Product solubility abnormal [Unknown]
  - Off label use [Unknown]
  - Product use in unapproved indication [Unknown]
  - Dysgeusia [Unknown]
  - Poor quality product administered [Unknown]
  - Incorrect product administration duration [Unknown]
  - Product taste abnormal [Unknown]
